FAERS Safety Report 10081366 (Version 1)
Quarter: 2014Q2

REPORT INFORMATION
  Report Type: Spontaneous
  Country: US (occurrence: None)
  Receive Date: 20140414
  Receipt Date: 20140414
  Transmission Date: 20141212
  Serious: Yes (Death)
  Sender: FDA-Public Use
  Company Number: UTC-046974

PATIENT
  Age: 65 Year
  Sex: Male
  Weight: 81.2 kg

DRUGS (3)
  1. REMODULIN [Suspect]
     Dosage: 57.6 UG/KG (0.04 UG/KG 1 IN 1
     Route: 058
     Dates: start: 20140226
  2. LETAIRIS (AMBRISENTAN) [Concomitant]
  3. REVATIO (SILDENAFIL CITRATE) [Concomitant]

REACTIONS (1)
  - Death [None]
